FAERS Safety Report 8393140-6 (Version None)
Quarter: 2012Q1

REPORT INFORMATION
  Report Type: 
  Country: None (occurrence: None)
  Receive Date: 20120323
  Receipt Date: 20110311
  Transmission Date: 20120608
  Serious: Yes (Other)
  Sender: FDA-Public Use
  Company Number: 163-21880-11031583

PATIENT
  Age: 57 Year
  Sex: Male

DRUGS (1)
  1. REVLIMID [Suspect]
     Indication: LYMPHOMA
     Dosage: 5 MG, DAILY FOR 21 DAYS ON, PO
     Route: 048
     Dates: start: 20101108

REACTIONS (2)
  - LYMPHOMA [None]
  - DISEASE PROGRESSION [None]
